FAERS Safety Report 9031194 (Version 1)
Quarter: 2013Q1

REPORT INFORMATION
  Report Type: Spontaneous
  Country: US (occurrence: US)
  Receive Date: 20130123
  Receipt Date: 20130123
  Transmission Date: 20140127
  Serious: Yes (Other)
  Sender: FDA-Public Use
  Company Number: CHPA2013US001201

PATIENT
  Age: 68 Year
  Sex: Male

DRUGS (1)
  1. MAALOX ANTACID/ANTIGAS MAX QDTABS ASST [Suspect]
     Indication: GASTRITIS
     Dosage: AS DIRECTED
     Route: 048

REACTIONS (3)
  - Gastritis [Not Recovered/Not Resolved]
  - Off label use [Unknown]
  - Expired drug administered [Unknown]
